FAERS Safety Report 9877033 (Version 1)
Quarter: 2014Q1

REPORT INFORMATION
  Report Type: Spontaneous
  Country: US (occurrence: US)
  Receive Date: 20140206
  Receipt Date: 20140206
  Transmission Date: 20141002
  Serious: No
  Sender: FDA-Public Use
  Company Number: US-B.I. PHARMACEUTICALS,INC./RIDGEFIELD-2014-BI-04209BP

PATIENT
  Sex: Male
  Weight: 86 kg

DRUGS (1)
  1. COMBIVENT [Suspect]
     Indication: ASTHMA
     Dosage: DOSE PER APPLICATION: 18 MCG / 103 MCG; DAILY DOSE: 36 MCG/824 MCG
     Route: 055
     Dates: start: 1996, end: 201309

REACTIONS (2)
  - Body height decreased [Not Recovered/Not Resolved]
  - Off label use [Recovered/Resolved]
